FAERS Safety Report 18676559 (Version 2)
Quarter: 2021Q1

REPORT INFORMATION
  Report Type: Spontaneous
  Country: KR (occurrence: KR)
  Receive Date: 20201229
  Receipt Date: 20210114
  Transmission Date: 20210419
  Serious: Yes (Hospitalization)
  Sender: FDA-Public Use
  Company Number: KR-SAMSUNG BIOEPIS-SB-2020-38307

PATIENT
  Age: 79 Year
  Sex: Male
  Weight: 56 kg

DRUGS (27)
  1. RINO EBASTEL [Suspect]
     Active Substance: EBASTINE\PSEUDOEPHEDRINE HYDROCHLORIDE
     Indication: PROPHYLAXIS
     Dosage: ONE CAP
     Route: 048
     Dates: start: 20201229, end: 20201229
  2. MEROPENEM. [Suspect]
     Active Substance: MEROPENEM
     Indication: BLOOD BILIRUBIN INCREASED
     Route: 042
     Dates: start: 20201224, end: 20201225
  3. CEFOTAXIME [Suspect]
     Active Substance: CEFOTAXIME SODIUM
     Indication: BLOOD BILIRUBIN INCREASED
     Route: 042
     Dates: start: 20201225, end: 20210105
  4. DILTIAZEM HCL [Suspect]
     Active Substance: DILTIAZEM HYDROCHLORIDE
     Route: 048
     Dates: start: 20201228
  5. DULCOLAX NOS [Suspect]
     Active Substance: BISACODYL OR DOCUSATE SODIUM
     Dosage: TWO TABLET
     Route: 048
     Dates: start: 20201231
  6. BISACODYL. [Suspect]
     Active Substance: BISACODYL
     Indication: CONSTIPATION PROPHYLAXIS
     Dosage: FREQUENCY: ONCE, ROUTE: SUPP
     Route: 065
     Dates: end: 20201227
  7. LEVAN H [Suspect]
     Active Substance: .ALPHA.-TOCOPHEROL ACETATE\ALLANTOIN\LIDOCAINE\PREDNISOLONE
     Indication: PROPHYLAXIS
     Dosage: ROUTE: OINR
     Route: 065
     Dates: start: 20201228, end: 20201229
  8. MACROGOL 4000 [Suspect]
     Active Substance: POLYETHYLENE GLYCOL 4000
     Indication: CONSTIPATION PROPHYLAXIS
     Route: 048
     Dates: end: 20201229
  9. SAMFENET [Suspect]
     Active Substance: TRASTUZUMAB
     Indication: METASTATIC GASTRIC CANCER
     Route: 065
     Dates: start: 20200902, end: 20201201
  10. ALBUMIN [Suspect]
     Active Substance: ALBUMIN HUMAN
     Indication: HYPOALBUMINAEMIA
     Dosage: ONCE
     Route: 042
     Dates: start: 20201227, end: 20201227
  11. AGIOCUR [PLANTAGO OVATA] [Suspect]
     Active Substance: HERBALS\PLANTAGO OVATA LEAF
     Indication: CONSTIPATION PROPHYLAXIS
     Dosage: TWO PACK, PREGRANULES
     Route: 048
  12. TEICOPLANIN [Suspect]
     Active Substance: TEICOPLANIN
     Indication: BLOOD BILIRUBIN INCREASED
     Dosage: ONCE
     Route: 042
     Dates: start: 20201224, end: 20201224
  13. TRAMADOL HCL [Suspect]
     Active Substance: TRAMADOL HYDROCHLORIDE
     Indication: PROPHYLAXIS
     Route: 048
     Dates: start: 20201225, end: 20201228
  14. DILTIAZEM HCL [Suspect]
     Active Substance: DILTIAZEM HYDROCHLORIDE
     Dosage: ONCE CONTINUOUS
     Route: 042
     Dates: start: 20201228, end: 20201228
  15. DULCOLAX NOS [Suspect]
     Active Substance: BISACODYL OR DOCUSATE SODIUM
     Indication: CONSTIPATION PROPHYLAXIS
     Dosage: TWO T
     Route: 048
     Dates: start: 20201227, end: 20201227
  16. POTASSIUM PHOSPHATE MONOBASIC [Suspect]
     Active Substance: POTASSIUM PHOSPHATE, MONOBASIC
     Indication: HYPOPHOSPHATAEMIA
     Dosage: ONCE CONTINOUS
     Route: 042
     Dates: end: 20201228
  17. CEFIXIME. [Concomitant]
     Active Substance: CEFIXIME
     Indication: BLOOD BILIRUBIN INCREASED
     Route: 048
     Dates: start: 20210106
  18. TAMSULOSIN HCL [Suspect]
     Active Substance: TAMSULOSIN HYDROCHLORIDE
     Indication: AZOTAEMIA
     Dosage: 0.2 MILLIGRAM 2T
     Route: 048
     Dates: start: 20201225
  19. DILTIAZEM HCL [Suspect]
     Active Substance: DILTIAZEM HYDROCHLORIDE
     Indication: HYPOPHOSPHATAEMIA
     Route: 048
     Dates: start: 20201225, end: 20201227
  20. DUTASTERIDE. [Suspect]
     Active Substance: DUTASTERIDE
     Indication: PROPHYLAXIS
     Route: 048
     Dates: end: 20210105
  21. FAMOTIDINE. [Suspect]
     Active Substance: FAMOTIDINE
     Indication: BLOOD BILIRUBIN INCREASED
     Route: 048
     Dates: start: 20201224, end: 20201228
  22. TRAMADOL HCL [Suspect]
     Active Substance: TRAMADOL HYDROCHLORIDE
     Dosage: ONCE
     Route: 042
     Dates: start: 20210105, end: 20210105
  23. ESOMEPRAZOLE. [Suspect]
     Active Substance: ESOMEPRAZOLE MAGNESIUM
     Indication: PROPHYLAXIS
     Dosage: ONCE CONTINOUS
     Route: 042
     Dates: start: 20201228, end: 20210101
  24. POTASSIUM CHLORIDE. [Suspect]
     Active Substance: POTASSIUM CHLORIDE
     Indication: HYPOKALAEMIA
     Route: 048
     Dates: start: 20201224, end: 20201224
  25. LACTULOSE. [Suspect]
     Active Substance: LACTULOSE
     Indication: CONSTIPATION PROPHYLAXIS
     Route: 048
     Dates: start: 20201225, end: 20201230
  26. MAGNESIUM SULFATE. [Suspect]
     Active Substance: MAGNESIUM SULFATE
     Indication: HYPOMAGNESAEMIA
     Dosage: ONCE CONTINUOUS
     Route: 042
     Dates: end: 20201227
  27. ALBUMIN [Suspect]
     Active Substance: ALBUMIN HUMAN
     Dosage: ONCE
     Route: 042
     Dates: end: 20201229

REACTIONS (1)
  - Bile duct stone [Recovered/Resolved]

NARRATIVE: CASE EVENT DATE: 20201221
